FAERS Safety Report 6178878-3 (Version None)
Quarter: 2009Q2

REPORT INFORMATION
  Report Type: 
  Country: None (occurrence: None)
  Receive Date: 20090505
  Receipt Date: 20090504
  Transmission Date: 20091009
  Serious: Yes (Other)
  Sender: FDA-Public Use
  Company Number: US-PFIZER INC-2009178360

PATIENT
  Sex: Female
  Weight: 91 kg

DRUGS (4)
  1. CADUET [Suspect]
     Indication: HYPERTENSION
     Dates: start: 20081201, end: 20090201
  2. CADUET [Suspect]
     Indication: BLOOD CHOLESTEROL INCREASED
  3. LORTAB [Suspect]
     Dosage: UNK
  4. XANAX [Concomitant]
     Dosage: UNK

REACTIONS (13)
  - BONE PAIN [None]
  - DRUG HYPERSENSITIVITY [None]
  - DRUG INEFFECTIVE [None]
  - GAIT DISTURBANCE [None]
  - GRIP STRENGTH DECREASED [None]
  - HYPOAESTHESIA [None]
  - INAPPROPRIATE AFFECT [None]
  - JOINT CREPITATION [None]
  - JOINT DISLOCATION [None]
  - JOINT SWELLING [None]
  - MUSCLE SPASMS [None]
  - MUSCULAR WEAKNESS [None]
  - MYALGIA [None]
